FAERS Safety Report 7445413-9 (Version None)
Quarter: 2011Q2

REPORT INFORMATION
  Report Type: 
  Country: None (occurrence: None)
  Receive Date: 20110429
  Receipt Date: 20110419
  Transmission Date: 20111010
  Serious: Yes (Disabling, Other)
  Sender: FDA-Public Use
  Company Number: PHHY2011FR34118

PATIENT
  Sex: Male

DRUGS (2)
  1. TEGRETOL [Suspect]
     Indication: SCHIZOPHRENIA, PARANOID TYPE
     Dosage: 1.5 DF, TID
  2. RISPERDAL [Suspect]
     Indication: SCHIZOPHRENIA, PARANOID TYPE

REACTIONS (3)
  - BONE DENSITY DECREASED [None]
  - TOOTH LOSS [None]
  - PERIODONTAL DISEASE [None]
